FAERS Safety Report 10661087 (Version 2)
Quarter: 2014Q4

REPORT INFORMATION
  Report Type: Spontaneous
  Country: PE (occurrence: PE)
  Receive Date: 20141218
  Receipt Date: 20141224
  Transmission Date: 20150529
  Serious: Yes (Death)
  Sender: FDA-Public Use
  Company Number: PE-009507513-1412PER008318

PATIENT
  Sex: Female

DRUGS (4)
  1. REMERON [Suspect]
     Active Substance: MIRTAZAPINE
     Indication: DEPRESSION
     Dosage: 15 MG, QD
     Route: 048
     Dates: start: 2012, end: 2014
  2. NEURYL (CLONAZEPAM) [Concomitant]
     Indication: DEMENTIA ALZHEIMER^S TYPE
     Dosage: FORMULATION DROPS
     Route: 048
     Dates: end: 2014
  3. CALCIUM (UNSPECIFIED) [Concomitant]
     Active Substance: CALCIUM
     Indication: OSTEOPENIA
     Dosage: UNK
     Route: 048
     Dates: end: 2014
  4. NEOPRESOL [Concomitant]
     Indication: DEPRESSION
     Dosage: UNK
     Route: 048
     Dates: end: 2014

REACTIONS (4)
  - Asthenia [Unknown]
  - Death [Fatal]
  - Weight decreased [Unknown]
  - Food aversion [Unknown]

NARRATIVE: CASE EVENT DATE: 2014
